FAERS Safety Report 8244860-5 (Version None)
Quarter: 2012Q1

REPORT INFORMATION
  Report Type: 
  Country: None (occurrence: None)
  Receive Date: 20120329
  Receipt Date: 20110628
  Transmission Date: 20120608
  Serious: No
  Sender: FDA-Public Use
  Company Number: US-MYLANLABS-2011S1013672

PATIENT
  Age: 59 Year
  Sex: Female

DRUGS (4)
  1. FENTANYL-100 [Suspect]
     Indication: OVARIAN CANCER
     Dosage: CHANGED Q72H
     Route: 062
     Dates: start: 20110201
  2. PRAMIPEXOLE DIHYDROCHLORIDE [Concomitant]
     Indication: RESTLESS LEGS SYNDROME
  3. BISOPROLOL FUMARATE [Concomitant]
     Indication: BLOOD PRESSURE INCREASED
  4. COUMADIN [Concomitant]
     Indication: ANTICOAGULANT THERAPY

REACTIONS (1)
  - DRUG WITHDRAWAL SYNDROME [None]
